FAERS Safety Report 17151125 (Version 1)
Quarter: 2019Q4

REPORT INFORMATION
  Report Type: Spontaneous
  Country: US (occurrence: US)
  Receive Date: 20191213
  Receipt Date: 20191213
  Transmission Date: 20200122
  Serious: No
  Sender: FDA-Public Use
  Company Number: US-APOTEX-2019AP017567

PATIENT
  Age: 35 Year
  Sex: Male

DRUGS (1)
  1. OLANZAPINE. [Suspect]
     Active Substance: OLANZAPINE
     Indication: TOURETTE^S DISORDER
     Dosage: 7.5 TO 15 MG
     Route: 065
     Dates: start: 2015

REACTIONS (4)
  - Abnormal weight gain [Unknown]
  - Sedation [Recovered/Resolved]
  - Therapeutic product effect incomplete [Unknown]
  - Headache [Unknown]

NARRATIVE: CASE EVENT DATE: 2015
